FAERS Safety Report 15482595 (Version 1)
Quarter: 2018Q4

REPORT INFORMATION
  Report Type: Report from Study
  Country: DE (occurrence: DE)
  Receive Date: 20181010
  Receipt Date: 20181010
  Transmission Date: 20190205
  Serious: Yes (Hospitalization)
  Sender: FDA-Public Use
  Company Number: DE-PFIZER INC-2018404805

PATIENT
  Age: 72 Year
  Sex: Female
  Weight: 58 kg

DRUGS (17)
  1. MCP [METOCLOPRAMIDE] [Concomitant]
     Indication: DECREASED APPETITE
     Dosage: 30 MG, 1X/DAY
     Route: 048
     Dates: start: 2015
  2. NOVAMINSULFON [Concomitant]
     Active Substance: METAMIZOLE
     Indication: ABDOMINAL PAIN UPPER
     Dosage: 4 UNK, 1X/DAY (DOSE - 40 MG/ML)
     Route: 048
     Dates: start: 201411
  3. PLANUM [TEMAZEPAM] [Concomitant]
     Indication: PROPHYLAXIS
     Dosage: 20 MG, 1X/DAY
     Route: 048
     Dates: start: 201505
  4. IRINOTECAN HYDROCHLORIDE. [Suspect]
     Active Substance: IRINOTECAN HYDROCHLORIDE
     Dosage: 240 MG, UNK
     Route: 042
     Dates: start: 20150302, end: 20150302
  5. FLUOROURACIL. [Concomitant]
     Active Substance: FLUOROURACIL
     Dosage: 980 MG, UNK
     Route: 041
     Dates: start: 20140331, end: 20140402
  6. FLUOROURACIL. [Concomitant]
     Active Substance: FLUOROURACIL
     Indication: COLORECTAL CANCER
     Dosage: 650 MG, UNK
     Route: 040
     Dates: start: 20140331, end: 20140401
  7. PANTOZOL [Concomitant]
     Active Substance: PANTOPRAZOLE SODIUM
     Indication: PROPHYLAXIS
     Dosage: 40 MG, 1X/DAY
     Route: 048
  8. NEBIVOLOL. [Concomitant]
     Active Substance: NEBIVOLOL
     Indication: PROPHYLAXIS
     Dosage: 5 MG, 1X/DAY
     Route: 048
     Dates: start: 201505
  9. FLUOROURACIL. [Concomitant]
     Active Substance: FLUOROURACIL
     Dosage: 3800 MG, UNK
     Route: 041
     Dates: start: 20150302, end: 20150304
  10. CALCIUM FOLINATE [Suspect]
     Active Substance: LEUCOVORIN CALCIUM
     Indication: COLORECTAL CANCER
     Dosage: 330 MG, UNK
     Route: 042
     Dates: start: 20140331, end: 20140401
  11. CALCIUM FOLINATE [Suspect]
     Active Substance: LEUCOVORIN CALCIUM
     Dosage: 600 MG, UNK
     Route: 042
     Dates: start: 20150302, end: 20150303
  12. IRINOTECAN HYDROCHLORIDE. [Suspect]
     Active Substance: IRINOTECAN HYDROCHLORIDE
     Indication: COLORECTAL CANCER
     Dosage: 290 MG, UNK
     Route: 042
     Dates: start: 20140331, end: 20140331
  13. METOCLOPRAMIDE. [Concomitant]
     Active Substance: METOCLOPRAMIDE
     Indication: VOMITING
  14. BEVACIZUMAB. [Suspect]
     Active Substance: BEVACIZUMAB
     Indication: COLORECTAL CANCER
     Dosage: 300 MG, UNK
     Route: 042
     Dates: start: 20140331, end: 20140331
  15. BEVACIZUMAB. [Suspect]
     Active Substance: BEVACIZUMAB
     Dosage: 285 MG, UNK
     Route: 042
     Dates: start: 20150105, end: 20150105
  16. FLUOROURACIL. [Concomitant]
     Active Substance: FLUOROURACIL
     Dosage: 600 MG, UNK
     Route: 040
     Dates: start: 20150302, end: 20150303
  17. METOCLOPRAMIDE. [Concomitant]
     Active Substance: METOCLOPRAMIDE
     Indication: DECREASED APPETITE
     Dosage: 30 MG, 1X/DAY
     Route: 048
     Dates: start: 2015

REACTIONS (4)
  - Jaundice [Unknown]
  - Vomiting [Unknown]
  - Abdominal pain upper [Unknown]
  - Fatigue [Not Recovered/Not Resolved]

NARRATIVE: CASE EVENT DATE: 201503
